FAERS Safety Report 10019931 (Version 3)
Quarter: 2014Q2

REPORT INFORMATION
  Report Type: Report from Study
  Country: US (occurrence: US)
  Receive Date: 20140318
  Receipt Date: 20140401
  Transmission Date: 20141212
  Serious: Yes (Death, Hospitalization)
  Sender: FDA-Public Use
  Company Number: US-ACTELION-A-NJ2013-79037

PATIENT
  Age: 67 Year
  Sex: Male

DRUGS (4)
  1. VELETRI [Suspect]
     Indication: PULMONARY ARTERIAL HYPERTENSION
     Dosage: 9 NG/KG, PER MIN
     Route: 042
     Dates: start: 20130125, end: 20140305
  2. TRACLEER [Suspect]
     Indication: PULMONARY ARTERIAL HYPERTENSION
     Route: 048
  3. SILDENAFIL [Concomitant]
  4. VENTAVIS [Concomitant]

REACTIONS (4)
  - Disease progression [Fatal]
  - Right ventricular failure [Recovering/Resolving]
  - Dyspnoea [Unknown]
  - Fatigue [Unknown]
